FAERS Safety Report 9377104 (Version 1)
Quarter: 2013Q3

REPORT INFORMATION
  Report Type: Spontaneous
  Country: US (occurrence: US)
  Receive Date: 20130701
  Receipt Date: 20130701
  Transmission Date: 20140515
  Serious: Yes (Other)
  Sender: FDA-Public Use
  Company Number: US-PFIZER INC-2013194382

PATIENT
  Age: 50 Year
  Sex: Female
  Weight: 57.6 kg

DRUGS (2)
  1. CHANTIX [Suspect]
     Indication: SMOKING CESSATION THERAPY
     Dosage: UNK
     Dates: start: 20120303, end: 2012
  2. CHANTIX [Suspect]
     Dosage: 0.5 MG (SPLIT 1MG PILL INTO HALF), UNK
     Dates: start: 2012, end: 2012

REACTIONS (4)
  - Lung disorder [Unknown]
  - Chest pain [Unknown]
  - Pleuritic pain [Unknown]
  - Abnormal dreams [Recovered/Resolved]
